FAERS Safety Report 19790862 (Version 2)
Quarter: 2021Q3

REPORT INFORMATION
  Report Type: Spontaneous
  Country: US (occurrence: US)
  Receive Date: 20210906
  Receipt Date: 20210909
  Transmission Date: 20211014
  Serious: No
  Sender: FDA-Public Use
  Company Number: NVSC2021US201451

PATIENT
  Sex: Male

DRUGS (1)
  1. VOTRIENT [Suspect]
     Active Substance: PAZOPANIB HYDROCHLORIDE
     Indication: LARGE INTESTINE BENIGN NEOPLASM
     Dosage: 800 MG, QD
     Route: 048
     Dates: start: 202106

REACTIONS (1)
  - Drug ineffective for unapproved indication [Unknown]
